FAERS Safety Report 9759979 (Version 1)
Quarter: 2013Q4

REPORT INFORMATION
  Report Type: Spontaneous
  Country: JP (occurrence: JP)
  Receive Date: 20131216
  Receipt Date: 20131216
  Transmission Date: 20140711
  Serious: Yes (Other)
  Sender: FDA-Public Use
  Company Number: JP-MYLANLABS-2013S1027598

PATIENT
  Age: 23 Year
  Sex: Female
  Weight: 40 kg

DRUGS (2)
  1. TACROLIMUS [Suspect]
     Indication: COLITIS ULCERATIVE
     Route: 065
  2. PREDNISOLONE [Concomitant]
     Indication: COLITIS ULCERATIVE
     Dosage: 40 MG/DAY; THEN TITRATED TO MAINTAIN A HIGH TROUGH LEVEL
     Route: 065

REACTIONS (1)
  - Post transplant distal limb syndrome [Recovering/Resolving]
